FAERS Safety Report 4325274-7 (Version None)
Quarter: 2004Q1

REPORT INFORMATION
  Report Type: 
  Country: None (occurrence: None)
  Receive Date: 20040324
  Receipt Date: 20040310
  Transmission Date: 20041129
  Serious: Yes (Death, Hospitalization)
  Sender: FDA-Public Use
  Company Number: JP_040302776

PATIENT
  Age: 73 Year
  Sex: Male

DRUGS (1)
  1. VANCOMYCIN [Suspect]
     Indication: STAPHYLOCOCCAL INFECTION

REACTIONS (9)
  - ARTHRITIS INFECTIVE [None]
  - DEPRESSED LEVEL OF CONSCIOUSNESS [None]
  - IMPAIRED HEALING [None]
  - JOINT EFFUSION [None]
  - LEG AMPUTATION [None]
  - POST PROCEDURAL COMPLICATION [None]
  - PSEUDARTHROSIS [None]
  - RENAL FAILURE ACUTE [None]
  - RESPIRATORY ARREST [None]
